FAERS Safety Report 7116964-1 (Version None)
Quarter: 2010Q4

REPORT INFORMATION
  Report Type: 
  Country: None (occurrence: None)
  Receive Date: 20101122
  Receipt Date: 20100525
  Transmission Date: 20110411
  Serious: Yes (Hospitalization)
  Sender: FDA-Public Use
  Company Number: US-BAYER-200940827NA

PATIENT
  Age: 31 Year
  Sex: Female
  Weight: 50 kg

DRUGS (5)
  1. YASMIN [Suspect]
     Indication: ORAL CONTRACEPTION
     Route: 048
     Dates: start: 20061020, end: 20070601
  2. YASMIN [Suspect]
     Route: 048
     Dates: start: 20070926, end: 20071207
  3. HYDROCODONE [Concomitant]
     Dates: start: 20060101, end: 20100101
  4. IBUPROFEN [Concomitant]
     Dates: start: 20040101, end: 20080101
  5. FIORICET [Concomitant]
     Dates: start: 20071205

REACTIONS (10)
  - DIZZINESS [None]
  - HEADACHE [None]
  - HYPOAESTHESIA [None]
  - INTRACRANIAL VENOUS SINUS THROMBOSIS [None]
  - MUSCULAR WEAKNESS [None]
  - NAUSEA [None]
  - NECK PAIN [None]
  - PHOTOPHOBIA [None]
  - VISION BLURRED [None]
  - VOMITING [None]
